FAERS Safety Report 7116738-1 (Version None)
Quarter: 2010Q4

REPORT INFORMATION
  Report Type: 
  Country: None (occurrence: None)
  Receive Date: 20101122
  Receipt Date: 20101112
  Transmission Date: 20110411
  Serious: Yes (Hospitalization, Other)
  Sender: FDA-Public Use
  Company Number: PHHY2010BR21724

PATIENT
  Age: 23 Year
  Sex: Female
  Weight: 105 kg

DRUGS (3)
  1. FORASEQ [Suspect]
     Indication: ASTHMA
     Dosage: 1 DF BID
  2. COMBIVENT [Concomitant]
     Indication: ASTHMA
     Dosage: UNK
  3. DRUG THERAPY NOS [Concomitant]
     Indication: WEIGHT DECREASED

REACTIONS (2)
  - DRUG DOSE OMISSION [None]
  - PNEUMONIA VIRAL [None]
